FAERS Safety Report 13205882 (Version 1)
Quarter: 2017Q1

REPORT INFORMATION
  Report Type: Spontaneous
  Country: US (occurrence: US)
  Receive Date: 20170208
  Receipt Date: 20170208
  Transmission Date: 20170428
  Serious: Yes (Other)
  Sender: FDA-Public Use
  Company Number: None

PATIENT
  Age: 82 Year
  Sex: Male
  Weight: 65.25 kg

DRUGS (10)
  1. GENERAL CHEW-ABLE VATAMIN ALL DAILY [Concomitant]
  2. METOPROLOL SUCC ER [Concomitant]
     Active Substance: METOPROLOL SUCCINATE
  3. FLECANIDE [Concomitant]
     Active Substance: FLECAINIDE
  4. VITAMIN B12 [Concomitant]
     Active Substance: CYANOCOBALAMIN
  5. ATORVASTATIN [Concomitant]
     Active Substance: ATORVASTATIN
  6. FISH OIL [Concomitant]
     Active Substance: FISH OIL
  7. VITAMIN B6 [Concomitant]
     Active Substance: PYRIDOXINE HYDROCHLORIDE
  8. FOLIC ACID. [Concomitant]
     Active Substance: FOLIC ACID
  9. XARELTO [Suspect]
     Active Substance: RIVAROXABAN
     Indication: PRODUCT USED FOR UNKNOWN INDICATION
  10. VITAMIN D3 [Concomitant]
     Active Substance: CHOLECALCIFEROL

REACTIONS (2)
  - Therapy cessation [None]
  - Blood urine present [None]

NARRATIVE: CASE EVENT DATE: 20170206
